FAERS Safety Report 13581645 (Version 2)
Quarter: 2017Q2

REPORT INFORMATION
  Report Type: Spontaneous
  Country: US (occurrence: US)
  Receive Date: 20170525
  Receipt Date: 20170531
  Transmission Date: 20170830
  Serious: No
  Sender: FDA-Public Use
  Company Number: US-BAYER-2017-088158

PATIENT
  Sex: Male

DRUGS (2)
  1. CLARITIN [Suspect]
     Active Substance: LORATADINE
     Indication: COUGH
     Dosage: UNK
     Route: 065
  2. CLARITIN [Suspect]
     Active Substance: LORATADINE
     Indication: MULTIPLE ALLERGIES

REACTIONS (3)
  - Off label use [Unknown]
  - Product use in unapproved indication [Unknown]
  - Product use in unapproved indication [None]
